FAERS Safety Report 6850694-6 (Version None)
Quarter: 2010Q3

REPORT INFORMATION
  Report Type: 
  Country: None (occurrence: None)
  Receive Date: 20100716
  Receipt Date: 20071020
  Transmission Date: 20110219
  Serious: No
  Sender: FDA-Public Use
  Company Number: US-PFIZER INC-2007089821

PATIENT
  Sex: Male
  Weight: 84.1 kg

DRUGS (4)
  1. CHANTIX [Suspect]
     Indication: SMOKING CESSATION THERAPY
     Route: 048
     Dates: start: 20070725, end: 20070809
  2. LISINOPRIL [Concomitant]
  3. COREG [Concomitant]
  4. PLANT ALKALOIDS AND OTHER NATURAL PRODUCTS [Concomitant]

REACTIONS (1)
  - CONSTIPATION [None]
